FAERS Safety Report 4336353-2 (Version None)
Quarter: 2004Q2

REPORT INFORMATION
  Report Type: 
  Country: None (occurrence: None)
  Receive Date: 20040409
  Receipt Date: 20040409
  Transmission Date: 20050107
  Serious: Yes (Other)
  Sender: FDA-Public Use
  Company Number: None

PATIENT

DRUGS (2)
  1. HEPARIN [Suspect]
     Indication: CARDIAC DISORDER
     Dosage: 2,000 - 5,000 UNITS IV
     Route: 042
  2. HEPARIN [Suspect]

REACTIONS (1)
  - DRUG INEFFECTIVE [None]
